FAERS Safety Report 17978102 (Version 1)
Quarter: 2020Q3

REPORT INFORMATION
  Report Type: Spontaneous
  Country: SE (occurrence: SE)
  Receive Date: 20200703
  Receipt Date: 20200703
  Transmission Date: 20201103
  Serious: Yes (Other)
  Sender: FDA-Public Use
  Company Number: SE-ACCORD-188247

PATIENT
  Age: 49 Year
  Sex: Female

DRUGS (4)
  1. LONQUEX [Concomitant]
     Active Substance: LIPEGFILGRASTIM
  2. LETROZOLE. [Concomitant]
     Active Substance: LETROZOLE
  3. PACLITAXEL/PACLITAXEL LIPOSOME [Suspect]
     Active Substance: PACLITAXEL
     Indication: BREAST CANCER
     Dosage: 80 MG/ SQ M
     Route: 042
     Dates: start: 20200311, end: 20200513
  4. ZOLADEX [Concomitant]
     Active Substance: GOSERELIN ACETATE

REACTIONS (1)
  - Cystitis [Recovering/Resolving]

NARRATIVE: CASE EVENT DATE: 20200428
